FAERS Safety Report 14098635 (Version 1)
Quarter: 2017Q4

REPORT INFORMATION
  Report Type: Spontaneous
  Country: FR (occurrence: FR)
  Receive Date: 20171017
  Receipt Date: 20171017
  Transmission Date: 20180321
  Serious: Yes (Hospitalization)
  Sender: FDA-Public Use
  Company Number: FR-JNJFOC-20171011512

PATIENT
  Age: 28 Year
  Sex: Male

DRUGS (3)
  1. ORBENINE [Concomitant]
     Active Substance: CLOXACILLIN SODIUM
     Indication: ANTIBIOTIC THERAPY
     Route: 065
  2. SPORANOX [Suspect]
     Active Substance: ITRACONAZOLE
     Indication: EAR INFECTION
     Route: 065
     Dates: start: 201706, end: 201708
  3. SPORANOX [Suspect]
     Active Substance: ITRACONAZOLE
     Indication: EAR INFECTION
     Route: 065
     Dates: start: 20170909, end: 20170915

REACTIONS (6)
  - Headache [Recovered/Resolved]
  - Memory impairment [Recovered/Resolved]
  - Disturbance in attention [Recovered/Resolved]
  - Fatigue [Recovered/Resolved]
  - Asthenia [Recovered/Resolved]
  - Visual impairment [Recovered/Resolved]

NARRATIVE: CASE EVENT DATE: 201708
